FAERS Safety Report 5087348-5 (Version None)
Quarter: 2006Q3

REPORT INFORMATION
  Report Type: 
  Country: None (occurrence: None)
  Receive Date: 20060823
  Receipt Date: 20060823
  Transmission Date: 20061208
  Serious: Yes (Hospitalization)
  Sender: FDA-Public Use
  Company Number: None

PATIENT
  Age: 50 Year
  Sex: Male
  Weight: 76.2 kg

DRUGS (2)
  1. COLISTIMETHATE [Suspect]
     Indication: MULTIPLE-DRUG RESISTANCE
     Dosage: 150MG   Q12H       IV BOLUS
     Route: 040
  2. COLISTIMETHATE [Suspect]
     Indication: URINARY TRACT INFECTION
     Dosage: 150MG   Q12H       IV BOLUS
     Route: 040

REACTIONS (2)
  - HYPOKALAEMIA [None]
  - HYPOMAGNESAEMIA [None]
